FAERS Safety Report 17182626 (Version 1)
Quarter: 2019Q4

REPORT INFORMATION
  Report Type: Spontaneous
  Country: UA (occurrence: UA)
  Receive Date: 20191220
  Receipt Date: 20191220
  Transmission Date: 20200122
  Serious: Yes (Hospitalization)
  Sender: FDA-Public Use
  Company Number: UA-ASTRAZENECA-2019SF81956

PATIENT
  Age: 27661 Day
  Sex: Male

DRUGS (7)
  1. ASPIRIN. [Concomitant]
     Active Substance: ASPIRIN
  2. CARDIKET [Concomitant]
     Active Substance: ISOSORBIDE DINITRATE
  3. CLEXANE [Concomitant]
     Active Substance: ENOXAPARIN SODIUM
  4. RAMIPRIL. [Concomitant]
     Active Substance: RAMIPRIL
  5. BRILINTA [Suspect]
     Active Substance: TICAGRELOR
     Indication: ACUTE MYOCARDIAL INFARCTION
     Dosage: 90.0MG UNKNOWN
     Route: 048
     Dates: start: 20191130, end: 20191209
  6. CLIVAS [Concomitant]
     Active Substance: ROSUVASTATIN
  7. METOPROLOL. [Concomitant]
     Active Substance: METOPROLOL

REACTIONS (3)
  - Vascular stent thrombosis [Recovered/Resolved]
  - Loss of consciousness [Unknown]
  - Complication associated with device [Unknown]

NARRATIVE: CASE EVENT DATE: 20191209
